FAERS Safety Report 7714978-1 (Version None)
Quarter: 2011Q3

REPORT INFORMATION
  Report Type: 
  Country: None (occurrence: None)
  Receive Date: 20110829
  Receipt Date: 20110404
  Transmission Date: 20111222
  Serious: No
  Sender: FDA-Public Use
  Company Number: US-ASTRAZENECA-2011SE18786

PATIENT
  Age: 88 Year
  Sex: Female
  Weight: 47.6 kg

DRUGS (3)
  1. SPIRIVA [Concomitant]
     Indication: ASTHMA
  2. VIMOVO [Suspect]
     Indication: ARTHRITIS
     Dosage: 500 MG/20 MG TWO TIMES A DAY
     Route: 048
     Dates: start: 20110315, end: 20110331
  3. VIMOVO [Suspect]
     Dosage: 500 MG/20 MG EVERY DAY
     Route: 048
     Dates: start: 20110401

REACTIONS (1)
  - JOINT SWELLING [None]
